FAERS Safety Report 11170808 (Version 1)
Quarter: 2015Q2

REPORT INFORMATION
  Report Type: Spontaneous
  Country: US (occurrence: None)
  Receive Date: 20150515
  Receipt Date: 20150515
  Transmission Date: 20150821
  Serious: Yes (Other)
  Sender: FDA-Public Use
  Company Number: 2014015142

PATIENT
  Age: 38 Year
  Sex: Female
  Weight: 71.7 kg

DRUGS (2)
  1. TRAMADOL (TRAMADOL HYDROCHLORIDE) [Concomitant]
     Active Substance: TRAMADOL HYDROCHLORIDE
  2. CIMZIA [Suspect]
     Active Substance: CERTOLIZUMAB PEGOL
     Indication: CROHN^S DISEASE
     Route: 058
     Dates: start: 20120516

REACTIONS (5)
  - Benign neoplasm of thyroid gland [None]
  - Drug ineffective [None]
  - Vaginal haemorrhage [None]
  - Off label use [None]
  - White blood cell count increased [None]

NARRATIVE: CASE EVENT DATE: 201205
